FAERS Safety Report 10480477 (Version 1)
Quarter: 2014Q3

REPORT INFORMATION
  Report Type: Spontaneous
  Country: US (occurrence: None)
  Receive Date: 20140926
  Receipt Date: 20140926
  Transmission Date: 20150326
  Serious: Yes (Hospitalization)
  Sender: FDA-Public Use
  Company Number: None

PATIENT
  Age: 71 Year
  Sex: Male
  Weight: 114.76 kg

DRUGS (11)
  1. GLIMEPIRIDE. [Concomitant]
     Active Substance: GLIMEPIRIDE
  2. NAPROXEN. [Concomitant]
     Active Substance: NAPROXEN
  3. LISINOPRIL. [Concomitant]
     Active Substance: LISINOPRIL
  4. RIBAVIRIN. [Suspect]
     Active Substance: RIBAVIRIN
     Indication: HEPATITIS C
     Dosage: 600MG, 2 X DAILY, PO
     Route: 048
     Dates: start: 20131231, end: 20140617
  5. ALLOPURINOL. [Concomitant]
     Active Substance: ALLOPURINOL
  6. METFORMIN [Concomitant]
     Active Substance: METFORMIN HYDROCHLORIDE
  7. HYDROCHLOROTHIAZIDE. [Concomitant]
     Active Substance: HYDROCHLOROTHIAZIDE
  8. SILVER NITRATE-POTASSIUM NITRATE [Concomitant]
  9. OMEPRAZOLE. [Concomitant]
     Active Substance: OMEPRAZOLE
  10. SOFOSBUVIR 400MG [Suspect]
     Active Substance: SOFOSBUVIR
     Indication: HEPATITIS C
     Dosage: 400MG, 1 X DAILY, PO?
     Route: 048
     Dates: start: 20131231, end: 20140617
  11. POTASSIUM CITRATE. [Concomitant]
     Active Substance: POTASSIUM CITRATE

REACTIONS (3)
  - Dehydration [None]
  - Renal failure acute [None]
  - Anaemia [None]

NARRATIVE: CASE EVENT DATE: 20140117
